FAERS Safety Report 5704588-X (Version None)
Quarter: 2008Q2

REPORT INFORMATION
  Report Type: 
  Country: None (occurrence: None)
  Receive Date: 20080409
  Receipt Date: 20080324
  Transmission Date: 20081010
  Serious: Yes (Other)
  Sender: FDA-Public Use
  Company Number: 2008JP001518

PATIENT
  Age: 61 Year
  Sex: Female

DRUGS (2)
  1. PROGRAF [Suspect]
     Indication: STEM CELL TRANSPLANT
  2. METHOTREXATE [Concomitant]

REACTIONS (6)
  - ABDOMINAL PAIN UPPER [None]
  - EPIGASTRIC DISCOMFORT [None]
  - HAEMATEMESIS [None]
  - HAEMATOMA [None]
  - MEDIASTINAL HAEMORRHAGE [None]
  - PLATELET COUNT DECREASED [None]
